FAERS Safety Report 15052949 (Version 3)
Quarter: 2021Q4

REPORT INFORMATION
  Report Type: Spontaneous
  Country: IT (occurrence: IT)
  Receive Date: 20180622
  Receipt Date: 20211028
  Transmission Date: 20220303
  Serious: Yes (Other)
  Sender: FDA-Public Use
  Company Number: IT-BAYER-2018-047028

PATIENT
  Age: 3 Year
  Sex: Female

DRUGS (4)
  1. IBUPROFEN [Interacting]
     Active Substance: IBUPROFEN
     Indication: Pharyngitis
     Dosage: UNK
  2. IBUPROFEN [Interacting]
     Active Substance: IBUPROFEN
     Indication: Pyrexia
  3. ACETAMINOPHEN [Interacting]
     Active Substance: ACETAMINOPHEN
     Indication: Pharyngitis
     Dosage: UNK
  4. ACETAMINOPHEN [Interacting]
     Active Substance: ACETAMINOPHEN
     Indication: Pyrexia

REACTIONS (7)
  - Drug interaction [Unknown]
  - Renal tubular acidosis [Unknown]
  - Tubulointerstitial nephritis [Unknown]
  - Acute kidney injury [Unknown]
  - Oedema [Unknown]
  - Blood bicarbonate decreased [Unknown]
  - Dehydration [Unknown]
